FAERS Safety Report 4687065-7 (Version None)
Quarter: 2005Q2

REPORT INFORMATION
  Report Type: 
  Country: None (occurrence: None)
  Receive Date: 20050608
  Receipt Date: 20050526
  Transmission Date: 20051028
  Serious: Yes (Other)
  Sender: FDA-Public Use
  Company Number: 2005073491

PATIENT
  Age: 84 Year
  Sex: Female
  Weight: 74.8435 kg

DRUGS (4)
  1. BEXTRA [Suspect]
     Indication: OSTEOARTHRITIS
     Dosage: 10 MG (10 MG, 1 IN 1 D), ORAL
     Route: 048
  2. TENORMIN [Concomitant]
  3. SYTHROID (LEVOTHYROXINE SODIUM) [Concomitant]
  4. PREVACID [Concomitant]

REACTIONS (3)
  - DYSGRAPHIA [None]
  - PAIN IN EXTREMITY [None]
  - SWELLING [None]
